FAERS Safety Report 15298207 (Version 1)
Quarter: 2018Q3

REPORT INFORMATION
  Report Type: Spontaneous
  Country: US (occurrence: US)
  Receive Date: 20180820
  Receipt Date: 20180820
  Transmission Date: 20181010
  Serious: No
  Sender: FDA-Public Use
  Company Number: US-ALLERGAN-1770092US

PATIENT
  Age: 50 Year
  Sex: Male
  Weight: 92.97 kg

DRUGS (3)
  1. DEPLIN [Concomitant]
     Active Substance: LEVOMEFOLATE CALCIUM
     Indication: VITAMIN B COMPLEX DEFICIENCY
     Dosage: 15 MG, QD
     Route: 065
  2. SAPHRIS [Suspect]
     Active Substance: ASENAPINE MALEATE
     Indication: HALLUCINATION, AUDITORY
     Dosage: 5 MG, QD
     Route: 060
     Dates: start: 20171205
  3. HYDROCHLOROTHIAZIDE. [Concomitant]
     Active Substance: HYDROCHLOROTHIAZIDE
     Indication: HYPERTENSION
     Dosage: 50 MG, QD
     Route: 065

REACTIONS (5)
  - Speech disorder [Not Recovered/Not Resolved]
  - Cognitive disorder [Not Recovered/Not Resolved]
  - Gait disturbance [Unknown]
  - Incorrect dose administered [Unknown]
  - Feeling drunk [Unknown]

NARRATIVE: CASE EVENT DATE: 20171205
